FAERS Safety Report 20173589 (Version 1)
Quarter: 2021Q4

REPORT INFORMATION
  Report Type: Spontaneous
  Country: US (occurrence: US)
  Receive Date: 20211212
  Receipt Date: 20211212
  Transmission Date: 20220303
  Serious: No
  Sender: FDA-Public Use
  Company Number: US-BAXTER-2021BAX039089

PATIENT

DRUGS (1)
  1. NOREPINEPHRINE BITARTRATE [Suspect]
     Active Substance: NOREPINEPHRINE BITARTRATE
     Indication: Product used for unknown indication
     Dosage: AT ABOUT 150 MILLILITERS PER HOUR (ML/HR)
     Route: 065

REACTIONS (3)
  - Blood pressure fluctuation [Unknown]
  - Device alarm issue [Unknown]
  - Device infusion issue [Unknown]
